FAERS Safety Report 4445903-7 (Version None)
Quarter: 2004Q3

REPORT INFORMATION
  Report Type: 
  Country: None (occurrence: None)
  Receive Date: 20040907
  Receipt Date: 20040823
  Transmission Date: 20050211
  Serious: Yes (Other)
  Sender: FDA-Public Use
  Company Number: 2004-DE-04485GD

PATIENT
  Sex: Male

DRUGS (3)
  1. NEVIRAPINE (NEVIRAPINE) [Suspect]
     Indication: HIV INFECTION
  2. STAVUDINE (STAVUDINE) [Suspect]
     Indication: HIV INFECTION
  3. LAMIVUDINE (LAMIVUDINE) [Concomitant]

REACTIONS (4)
  - BLOOD HIV RNA INCREASED [None]
  - DRUG INEFFECTIVE [None]
  - DRUG INTOLERANCE [None]
  - PEYRONIE'S DISEASE [None]
